FAERS Safety Report 7779085-0 (Version None)
Quarter: 2011Q3

REPORT INFORMATION
  Report Type: 
  Country: None (occurrence: None)
  Receive Date: 20110926
  Receipt Date: 20110919
  Transmission Date: 20111222
  Serious: Yes (Other)
  Sender: FDA-Public Use
  Company Number: US-US-EMD SERONO, INC.-7082922

PATIENT
  Sex: Male
  Weight: 92 kg

DRUGS (5)
  1. DARUNAVIR ETHANOLATE [Concomitant]
  2. EGRIFTA [Suspect]
     Indication: LIPODYSTROPHY ACQUIRED
     Dates: start: 20110301
  3. TRUVADA [Concomitant]
  4. NORVIR [Concomitant]
  5. UNSPECIFIED PROPHYLACTIC MEDICATIONS [Concomitant]

REACTIONS (3)
  - CACHEXIA [None]
  - DYSPEPSIA [None]
  - DIVERTICULITIS [None]
